FAERS Safety Report 6880218-9 (Version None)
Quarter: 2010Q3

REPORT INFORMATION
  Report Type: 
  Country: None (occurrence: None)
  Receive Date: 20100728
  Receipt Date: 20100721
  Transmission Date: 20110219
  Serious: Yes (Life-Threatening, Hospitalization, Other)
  Sender: FDA-Public Use
  Company Number: CH-SANOFI-AVENTIS-2010SA043190

PATIENT
  Age: 65 Year
  Sex: Female

DRUGS (18)
  1. TAXOTERE [Suspect]
     Route: 042
     Dates: start: 20100422
  2. TAXOTERE [Suspect]
     Route: 042
     Dates: start: 20100517
  3. TAXOTERE [Suspect]
     Route: 042
     Dates: start: 20100607
  4. TAXOTERE [Suspect]
     Route: 042
     Dates: start: 20100628
  5. CYCLOPHOSPHAMIDE [Suspect]
     Route: 042
     Dates: start: 20100422
  6. CYCLOPHOSPHAMIDE [Suspect]
     Route: 042
     Dates: start: 20100517
  7. CYCLOPHOSPHAMIDE [Suspect]
     Route: 042
     Dates: start: 20100607
  8. CYCLOPHOSPHAMIDE [Suspect]
     Route: 042
     Dates: start: 20100628
  9. TRASTUZUMAB [Suspect]
     Route: 042
     Dates: start: 20100506
  10. TRASTUZUMAB [Suspect]
     Route: 042
     Dates: start: 20100517
  11. TRASTUZUMAB [Suspect]
     Route: 042
     Dates: start: 20100607
  12. TRASTUZUMAB [Suspect]
     Route: 042
     Dates: start: 20100628
  13. CLOZAPINE [Suspect]
     Route: 048
     Dates: start: 20100623, end: 20100627
  14. CLOZAPINE [Suspect]
     Route: 048
     Dates: start: 20100628, end: 20100630
  15. CLOZAPINE [Suspect]
     Route: 048
     Dates: start: 20100701, end: 20100707
  16. MIRTAZAPINE [Suspect]
     Route: 048
  17. NEULASTA [Concomitant]
     Indication: PROPHYLAXIS
     Dates: start: 20100518
  18. NEULASTA [Concomitant]
     Dates: start: 20100608

REACTIONS (4)
  - AGRANULOCYTOSIS [None]
  - DEPRESSION [None]
  - NEUTROPENIA [None]
  - SUICIDE ATTEMPT [None]
